FAERS Safety Report 24933458 (Version 2)
Quarter: 2025Q1

REPORT INFORMATION
  Report Type: Spontaneous
  Country: PT (occurrence: PT)
  Receive Date: 20250206
  Receipt Date: 20250228
  Transmission Date: 20250408
  Serious: Yes (Other)
  Sender: AUROBINDO
  Company Number: PT-002147023-NVSC2024PT241899

PATIENT
  Age: 53 Year
  Sex: Female

DRUGS (9)
  1. LETROZOLE [Suspect]
     Active Substance: LETROZOLE
     Indication: Invasive lobular breast carcinoma
     Dosage: 2.5 MILLIGRAM, ONCE A DAY
     Route: 065
     Dates: start: 202112, end: 202201
  2. LETROZOLE [Suspect]
     Active Substance: LETROZOLE
     Dosage: 2.5 MILLIGRAM, ONCE A DAY (AFTER A TWO-WEEK INTERVAL, DURING WHICH LABORATORY PARAMETERS WERE REASSE
     Route: 065
     Dates: start: 202201
  3. ABEMACICLIB [Suspect]
     Active Substance: ABEMACICLIB
     Indication: Breast cancer metastatic
     Dosage: 300 MILLIGRAM, ONCE A DAY
     Route: 065
     Dates: start: 202112
  4. ABEMACICLIB [Suspect]
     Active Substance: ABEMACICLIB
     Dosage: 200 MILLIGRAM, ONCE A DAY, 100 MG, BID
     Route: 065
     Dates: start: 20220113
  5. ABEMACICLIB [Suspect]
     Active Substance: ABEMACICLIB
     Route: 065
     Dates: start: 202112, end: 202201
  6. CANDESARTAN [Concomitant]
     Active Substance: CANDESARTAN
     Indication: Product used for unknown indication
     Route: 065
  7. ROSUVASTATIN [Concomitant]
     Active Substance: ROSUVASTATIN
     Indication: Product used for unknown indication
     Route: 065
  8. MIRTAZAPINE [Concomitant]
     Active Substance: MIRTAZAPINE
     Indication: Product used for unknown indication
     Route: 065
  9. BUPROPION [Concomitant]
     Active Substance: BUPROPION
     Indication: Product used for unknown indication
     Route: 065

REACTIONS (6)
  - Hepatitis [Recovered/Resolved]
  - Transaminases increased [Recovered/Resolved]
  - Drug-induced liver injury [Recovering/Resolving]
  - Hepatitis toxic [Recovered/Resolved]
  - Blood creatine increased [Recovered/Resolved]
  - Diarrhoea [Recovered/Resolved]

NARRATIVE: CASE EVENT DATE: 20220101
